FAERS Safety Report 20576097 (Version 1)
Quarter: 2022Q1

REPORT INFORMATION
  Report Type: Spontaneous
  Country: ES (occurrence: ES)
  Receive Date: 20220310
  Receipt Date: 20220310
  Transmission Date: 20220424
  Serious: Yes (Life-Threatening, Hospitalization, Other)
  Sender: FDA-Public Use
  Company Number: None

PATIENT
  Age: 55 Year
  Sex: Male
  Weight: 71 kg

DRUGS (2)
  1. OPDIVO [Suspect]
     Active Substance: NIVOLUMAB
     Indication: Rectal cancer metastatic
     Dosage: 3 MILLIGRAM/KILOGRAM
     Route: 042
     Dates: start: 20220124
  2. YERVOY [Suspect]
     Active Substance: IPILIMUMAB
     Indication: Renal cancer metastatic
     Dosage: 1 MILLIGRAM/KILOGRAM
     Route: 042
     Dates: start: 20220124, end: 20220211

REACTIONS (1)
  - Toxic epidermal necrolysis [Recovered/Resolved]

NARRATIVE: CASE EVENT DATE: 20220207
